FAERS Safety Report 5465330-3 (Version None)
Quarter: 2007Q3

REPORT INFORMATION
  Report Type: 
  Country: None (occurrence: None)
  Receive Date: 20070920
  Receipt Date: 20070920
  Transmission Date: 20080115
  Serious: Yes (Hospitalization)
  Sender: FDA-Public Use
  Company Number: None

PATIENT
  Sex: Male
  Weight: 62.9 kg

DRUGS (2)
  1. DAUNORUBICIN HCL [Suspect]
     Dosage: 172 MG
  2. PREDNISONE [Suspect]
     Dosage: 2800 MG

REACTIONS (11)
  - COLITIS [None]
  - CONSTIPATION [None]
  - FAECALOMA [None]
  - FEBRILE NEUTROPENIA [None]
  - GASTRITIS [None]
  - GASTROINTESTINAL NECROSIS [None]
  - HYPONATRAEMIA [None]
  - INAPPROPRIATE ANTIDIURETIC HORMONE SECRETION [None]
  - LARGE INTESTINE PERFORATION [None]
  - OESOPHAGEAL CANDIDIASIS [None]
  - PLATELET COUNT ABNORMAL [None]
